FAERS Safety Report 4351467-9 (Version None)
Quarter: 2004Q2

REPORT INFORMATION
  Report Type: 
  Country: None (occurrence: None)
  Receive Date: 20040503
  Receipt Date: 20040421
  Transmission Date: 20050107
  Serious: Yes (Hospitalization)
  Sender: FDA-Public Use
  Company Number: JP-BRISTOL-MYERS SQUIBB COMPANY-12572244

PATIENT
  Age: 85 Year
  Sex: Female

DRUGS (2)
  1. GATIFLO TABS 100 MG [Suspect]
     Indication: BRONCHITIS ACUTE
     Route: 048
     Dates: start: 20040406, end: 20040407
  2. CLARITH [Suspect]
     Indication: BRONCHITIS ACUTE
     Route: 048
     Dates: start: 20040403, end: 20040407

REACTIONS (1)
  - DELIRIUM [None]
